FAERS Safety Report 5958700-8 (Version None)
Quarter: 2008Q4

REPORT INFORMATION
  Report Type: 
  Country: None (occurrence: None)
  Receive Date: 20081119
  Receipt Date: 20081111
  Transmission Date: 20090506
  Serious: Yes (Other)
  Sender: FDA-Public Use
  Company Number: JP-PFIZER INC-2008095862

PATIENT
  Sex: Male

DRUGS (1)
  1. XALATAN [Suspect]
     Route: 031

REACTIONS (1)
  - INTRAOCULAR PRESSURE INCREASED [None]
